FAERS Safety Report 20652422 (Version 1)
Quarter: 2022Q1

REPORT INFORMATION
  Report Type: Spontaneous
  Country: FR (occurrence: FR)
  Receive Date: 20220330
  Receipt Date: 20220330
  Transmission Date: 20220424
  Serious: Yes (Other)
  Sender: FDA-Public Use
  Company Number: None

PATIENT
  Age: 50 Year
  Sex: Female

DRUGS (2)
  1. PAXLOVID [Suspect]
     Active Substance: NIRMATRELVIR\RITONAVIR
     Indication: COVID-19
     Dosage: 2X2 5 J
     Route: 048
     Dates: start: 20220317, end: 20220318
  2. PAXLOVID [Suspect]
     Active Substance: NIRMATRELVIR\RITONAVIR
     Indication: COVID-19
     Dosage: 2X2 5 J
     Route: 048
     Dates: start: 20220317, end: 20220318

REACTIONS (3)
  - Paraesthesia [Unknown]
  - Abdominal pain [Unknown]
  - Vomiting [Unknown]

NARRATIVE: CASE EVENT DATE: 20220318
